FAERS Safety Report 15347934 (Version 2)
Quarter: 2018Q4

REPORT INFORMATION
  Report Type: Spontaneous
  Country: US (occurrence: US)
  Receive Date: 20180904
  Receipt Date: 20181102
  Transmission Date: 20190204
  Serious: Yes (Death)
  Sender: FDA-Public Use
  Company Number: US-TAIHO ONCOLOGY  INC-EU-2018-01348

PATIENT
  Age: 54 Year
  Sex: Male

DRUGS (5)
  1. PREDNISONE. [Concomitant]
     Active Substance: PREDNISONE
     Dosage: NI
  2. SAW PALMETTO [Concomitant]
     Active Substance: HERBALS\SAW PALMETTO
     Dosage: NI
  3. MAGNESIUM [Concomitant]
     Active Substance: MAGNESIUM
     Dosage: NI
  4. LONSURF [Suspect]
     Active Substance: TIPIRACIL HYDROCHLORIDE\TRIFLURIDINE
     Indication: RECTOSIGMOID CANCER
     Dosage: CURRENT CYCLE UNKNOWN
     Route: 048
     Dates: start: 20180711, end: 2018
  5. CALCIUM [Concomitant]
     Active Substance: CALCIUM
     Dosage: NI

REACTIONS (1)
  - Colon cancer stage IV [Fatal]

NARRATIVE: CASE EVENT DATE: 20140827
